FAERS Safety Report 24305049 (Version 1)
Quarter: 2024Q3

REPORT INFORMATION
  Report Type: Spontaneous
  Country: US (occurrence: US)
  Receive Date: 20240911
  Receipt Date: 20240911
  Transmission Date: 20241016
  Serious: No
  Sender: BIOVITRUM
  Company Number: US-BIOVITRUM-2024-US-011827

PATIENT
  Age: 77 Year
  Sex: Male

DRUGS (1)
  1. VONJO [Suspect]
     Active Substance: PACRITINIB
     Indication: Myeloproliferative neoplasm
     Dosage: TWICE DAILY
     Route: 048
     Dates: start: 20240815

REACTIONS (3)
  - Vomiting [Unknown]
  - Fatigue [Unknown]
  - Diarrhoea [Unknown]
